APPROVED DRUG PRODUCT: ORLADEYO
Active Ingredient: BEROTRALSTAT DIHYDROCHLORIDE
Strength: EQ 110MG BASE
Dosage Form/Route: CAPSULE;ORAL
Application: N214094 | Product #001
Applicant: BIOCRYST PHARMACEUTICALS INC
Approved: Dec 3, 2020 | RLD: Yes | RS: No | Type: RX

PATENTS:
Patent 11117867 | Expires: Nov 1, 2039
Patent 11230530 | Expires: Mar 9, 2035
Patent 11708333 | Expires: Mar 9, 2035
Patent 12344585 | Expires: Nov 1, 2039
Patent 10125102 | Expires: Apr 7, 2035
Patent 10689346 | Expires: Mar 9, 2035
Patent 10662160 | Expires: Nov 1, 2039
Patent 11618733 | Expires: Nov 1, 2039
Patent 10329260 | Expires: Mar 9, 2035
Patent 12116346 | Expires: Mar 9, 2035
Patent 12344585*PED | Expires: May 1, 2040
Patent 11618733*PED | Expires: May 1, 2040
Patent 12116346*PED | Expires: Sep 9, 2035
Patent 11117867*PED | Expires: May 1, 2040
Patent 11708333*PED | Expires: Sep 9, 2035
Patent 11230530*PED | Expires: Sep 9, 2035
Patent 10125102*PED | Expires: Oct 7, 2035
Patent 10689346*PED | Expires: Sep 9, 2035
Patent 10662160*PED | Expires: May 1, 2040
Patent 10329260*PED | Expires: Sep 9, 2035

EXCLUSIVITY:
Code: ODE-333 | Date: Dec 3, 2027
Code: PED | Date: Jun 3, 2028